FAERS Safety Report 25401469 (Version 1)
Quarter: 2025Q2

REPORT INFORMATION
  Report Type: Spontaneous
  Country: US (occurrence: None)
  Receive Date: 20250603
  Receipt Date: 20250603
  Transmission Date: 20250716
  Serious: Yes (unspecified)
  Sender: FDA-CTU
  Company Number: None

PATIENT
  Age: 59 Year
  Sex: Male

DRUGS (1)
  1. GABAPENTIN [Suspect]
     Active Substance: GABAPENTIN
     Indication: Pain
     Dosage: FREQUENCY : AT BEDTIME;?
     Route: 048

REACTIONS (4)
  - Angioedema [None]
  - Drug hypersensitivity [None]
  - Food allergy [None]
  - Food allergy [None]

NARRATIVE: CASE EVENT DATE: 20250212
